FAERS Safety Report 10032309 (Version 1)
Quarter: 2014Q1

REPORT INFORMATION
  Report Type: Spontaneous
  Country: US (occurrence: US)
  Receive Date: 20140324
  Receipt Date: 20140324
  Transmission Date: 20141002
  Serious: Yes (Other)
  Sender: FDA-Public Use
  Company Number: US-PFIZER INC-2014081150

PATIENT
  Sex: Male

DRUGS (1)
  1. AXITINIB [Suspect]
     Indication: RENAL CELL CARCINOMA
     Dosage: UNK

REACTIONS (1)
  - Drug-induced liver injury [Unknown]
